FAERS Safety Report 5049418-7 (Version None)
Quarter: 2006Q2

REPORT INFORMATION
  Report Type: 
  Country: None (occurrence: None)
  Receive Date: 20060613
  Receipt Date: 20060414
  Transmission Date: 20061013
  Serious: No
  Sender: FDA-Public Use
  Company Number: 2006-00883

PATIENT
  Age: 71 Year
  Sex: Male

DRUGS (7)
  1. VELCADE [Suspect]
     Indication: MULTIPLE MYELOMA
     Dates: start: 20060320, end: 20060330
  2. TRAMADOL HCL [Concomitant]
  3. WARFARIN SODIUM [Concomitant]
  4. GLYBURIDE [Concomitant]
  5. COREG [Concomitant]
  6. PROTONIX [Concomitant]
  7. NORVASC [Concomitant]

REACTIONS (1)
  - WEIGHT INCREASED [None]
